FAERS Safety Report 16862152 (Version 1)
Quarter: 2019Q3

REPORT INFORMATION
  Report Type: Spontaneous
  Country: US (occurrence: US)
  Receive Date: 20190927
  Receipt Date: 20190927
  Transmission Date: 20191005
  Serious: No
  Sender: FDA-Public Use
  Company Number: US-ELI_LILLY_AND_COMPANY-US201909013029

PATIENT
  Sex: Male

DRUGS (3)
  1. GLYBURIDE. [Suspect]
     Active Substance: GLYBURIDE
     Indication: TYPE 2 DIABETES MELLITUS
     Dosage: 5 DOSAGE FORM, PRN (4-5 PILLS)
     Route: 065
  2. TRULICITY [Suspect]
     Active Substance: DULAGLUTIDE
     Indication: TYPE 2 DIABETES MELLITUS
     Dosage: 0.75 MG, UNKNOWN
     Route: 058
     Dates: start: 201907
  3. METFORMIN [Suspect]
     Active Substance: METFORMIN HYDROCHLORIDE
     Indication: TYPE 2 DIABETES MELLITUS
     Dosage: 1500 DOSAGE FORM, DAILY
     Route: 065

REACTIONS (13)
  - Headache [Unknown]
  - Feeling abnormal [Unknown]
  - Thinking abnormal [Unknown]
  - Dyspepsia [Unknown]
  - Cognitive disorder [Unknown]
  - Confusional state [Unknown]
  - Dysphonia [Unknown]
  - Fatigue [Unknown]
  - Blood glucose increased [Unknown]
  - Head discomfort [Unknown]
  - Decreased appetite [Unknown]
  - Diarrhoea [Unknown]
  - Mouth swelling [Unknown]
